FAERS Safety Report 7511779-4 (Version None)
Quarter: 2011Q2

REPORT INFORMATION
  Report Type: 
  Country: None (occurrence: None)
  Receive Date: 20110531
  Receipt Date: 20110518
  Transmission Date: 20111010
  Serious: Yes (Hospitalization, Other)
  Sender: FDA-Public Use
  Company Number: US-AMGEN-USASP2011025731

PATIENT
  Age: 65 Year
  Sex: Female

DRUGS (2)
  1. TREXALL [Concomitant]
     Dosage: 1 MG, QWK
     Dates: start: 19900101
  2. ENBREL [Suspect]
     Indication: RHEUMATOID ARTHRITIS
     Dosage: 50 MG, QWK
     Dates: start: 20020101, end: 20101001

REACTIONS (4)
  - INTERVERTEBRAL DISC PROTRUSION [None]
  - BACK PAIN [None]
  - HYPERPARATHYROIDISM [None]
  - OSTEOPOROSIS [None]
